FAERS Safety Report 9637442 (Version 1)
Quarter: 2013Q4

REPORT INFORMATION
  Report Type: Spontaneous
  Country: US (occurrence: None)
  Receive Date: 20131018
  Receipt Date: 20131018
  Transmission Date: 20140711
  Serious: Yes (Disabling)
  Sender: FDA-Public Use
  Company Number: 2013P1020239

PATIENT
  Age: 25 Year
  Sex: Male
  Weight: 86.64 kg

DRUGS (1)
  1. HYDROXYCHLOROQUINE [Suspect]

REACTIONS (2)
  - Night blindness [None]
  - Retinal toxicity [None]
